FAERS Safety Report 7801878-1 (Version None)
Quarter: 2011Q4

REPORT INFORMATION
  Report Type: 
  Country: None (occurrence: None)
  Receive Date: 20111007
  Receipt Date: 20111003
  Transmission Date: 20120403
  Serious: Yes (Other)
  Sender: FDA-Public Use
  Company Number: US-PFIZER INC-2011171437

PATIENT
  Sex: Female
  Weight: 72.6 kg

DRUGS (34)
  1. LYRICA [Suspect]
     Indication: POST HERPETIC NEURALGIA
  2. ACETYLSALICYLIC ACID [Concomitant]
     Indication: CARDIAC DISORDER
     Dosage: 81 MG, 1X/DAY
     Route: 048
     Dates: start: 20100624
  3. LIPITOR [Concomitant]
     Indication: BLOOD CHOLESTEROL INCREASED
     Dosage: 10 MG, 1X/DAY
     Dates: start: 20110629
  4. GLUCOSAMINE HYDROCHLORIDE/CHONDROITIN SULFATE [Concomitant]
     Dosage: 750-600 MG
     Route: 048
  5. RITALIN [Concomitant]
     Dosage: 5 MG, 1X/DAY
     Route: 048
     Dates: start: 20110926
  6. CYMBALTA [Concomitant]
     Indication: PAIN
     Dosage: 60 MG, 1X/DAY
  7. MAGNESIUM [Concomitant]
     Dosage: UNK
  8. LIDOCAINE [Concomitant]
     Dosage: 5 PERCENT EXTERNAL OINTMENT
     Dates: start: 20101026
  9. CELEBREX [Concomitant]
     Indication: ARTHRITIS
     Dosage: 200 MG, 1X/DAY
     Dates: start: 20100624
  10. AVAPRO [Concomitant]
     Dosage: 150 MG, 1X/DAY
     Dates: start: 20100930
  11. RISPERDAL [Concomitant]
     Indication: DEPRESSION
     Dosage: 1 MG, 1X/DAY
  12. GLUCOSAMINE [Concomitant]
     Indication: ARTHRITIS
     Dosage: 1500 MG, 1X/DAY
     Dates: start: 20110101
  13. CALCIUM WITH VITAMIN D [Concomitant]
     Dosage: 1 DF, 2X/DAY
  14. COMBIVENT [Concomitant]
     Dosage: 18-103 MCG/ACT 2 PUFF TWICE DAILY
     Route: 055
     Dates: start: 20100608
  15. POLYETHYLENE GLYCOL [Concomitant]
     Dosage: 17 G, 1X/DAY
     Route: 048
  16. ZEASORB AF [Concomitant]
     Dosage: 2 PERCENT EXTERNAL POWDER
     Dates: start: 20100310
  17. LYRICA [Suspect]
     Indication: HERPES ZOSTER
     Dosage: 50 MG, 3X/DAY
     Route: 048
     Dates: start: 20110421, end: 20110727
  18. POTASSIUM [Concomitant]
     Indication: SUPPLEMENTATION THERAPY
     Dosage: 20 MEQ, 1X/DAY
     Route: 048
     Dates: start: 20100225
  19. ACETAMINOPHEN [Concomitant]
     Indication: PAIN
     Dosage: 325 MG, UNK
     Route: 048
     Dates: start: 20100310
  20. HYALURONIC ACID [Concomitant]
     Indication: ARTHRITIS
     Dosage: 100 MG, 1X/DAY
     Dates: start: 20110101
  21. CIPROFLOXACIN [Concomitant]
     Dosage: HC 0.2-1 PERCENT OTIC SUSPENSION
     Dates: start: 20100310
  22. GINGER [Concomitant]
     Dosage: 500 MG, UNK
     Dates: start: 20100624
  23. LOVAZA [Concomitant]
     Dosage: UNK
  24. XANAX [Concomitant]
     Dosage: UNK
  25. DOXEPIN [Concomitant]
     Indication: DEPRESSION
     Dosage: 100 MG, 1X/DAY
     Dates: start: 20110101
  26. AMITRIPTYLINE [Concomitant]
     Dosage: 75 MG, 1X/DAY
     Route: 048
     Dates: start: 20110926
  27. FERROUS SULFATE [Concomitant]
     Dosage: 325 MG, UNK
     Route: 048
     Dates: start: 20110412
  28. NYSTATIN [Concomitant]
     Dosage: 100000 UNIT/GM EXTERNAL CREAM TWICE A DAY
     Dates: start: 20100722
  29. VITAMIN B COMPLEX CAP [Concomitant]
     Dosage: UNK
  30. LASIX [Concomitant]
     Indication: OEDEMA PERIPHERAL
     Dosage: 40 MG, EVERY OTHER DAY
     Dates: start: 20100310
  31. PROTONIX [Concomitant]
     Indication: GASTROOESOPHAGEAL REFLUX DISEASE
     Dosage: 40 MG, 2X/DAY
     Route: 048
  32. BENZONATATE [Concomitant]
     Dosage: 200 MG, 2-3 TIMES A DAY
     Route: 048
     Dates: start: 20110708
  33. NYSTATIN [Concomitant]
     Dosage: 100000 UNIT/GM EXTERNAL POWDER TWICE A DAY
     Dates: start: 20110915
  34. RESTASIS [Concomitant]
     Dosage: 0.05 PERCENT
     Route: 047

REACTIONS (8)
  - BRONCHITIS [None]
  - HERPES ZOSTER [None]
  - TREMOR [None]
  - PAIN [None]
  - DRUG INEFFECTIVE [None]
  - NEURALGIA [None]
  - COUGH [None]
  - ARTHRITIS [None]
